FAERS Safety Report 18031382 (Version 1)
Quarter: 2020Q3

REPORT INFORMATION
  Report Type: Spontaneous
  Country: CA (occurrence: CA)
  Receive Date: 20200716
  Receipt Date: 20200716
  Transmission Date: 20201103
  Serious: Yes (Life-Threatening, Hospitalization)
  Sender: FDA-Public Use
  Company Number: CA-TEVA-2020-CA-1800654

PATIENT
  Age: 59 Year
  Sex: Male
  Weight: 93.07 kg

DRUGS (1)
  1. TEVA?PREDNISONE [Suspect]
     Active Substance: PREDNISONE
     Indication: PNEUMONIA
     Dosage: 50 MILLIGRAM DAILY;
     Route: 048

REACTIONS (4)
  - Arthralgia [Unknown]
  - Insomnia [Unknown]
  - Dyspnoea [Unknown]
  - Anxiety [Unknown]
